FAERS Safety Report 4293900-7 (Version None)
Quarter: 2004Q1

REPORT INFORMATION
  Report Type: 
  Country: None (occurrence: None)
  Receive Date: 20040126
  Receipt Date: 20031017
  Transmission Date: 20041129
  Serious: No
  Sender: FDA-Public Use
  Company Number: USA031049441

PATIENT
  Age: 76 Year
  Sex: Female

DRUGS (1)
  1. FORTEO [Suspect]
     Dates: start: 20030925

REACTIONS (4)
  - CARDIAC FLUTTER [None]
  - DYSPNOEA [None]
  - EMPHYSEMA [None]
  - PALPITATIONS [None]
